FAERS Safety Report 17377351 (Version 1)
Quarter: 2020Q1

REPORT INFORMATION
  Report Type: Spontaneous
  Country: US (occurrence: US)
  Receive Date: 20200122
  Receipt Date: 20200122
  Transmission Date: 20200409
  Serious: No
  Sender: FDA-Public Use
  Company Number: None

PATIENT
  Age: 38 Year
  Sex: Female
  Weight: 116.57 kg

DRUGS (1)
  1. LEVOTHYROXINE 100MCG TABLETS [Suspect]
     Active Substance: LEVOTHYROXINE
     Indication: AUTOIMMUNE THYROIDITIS
     Dates: start: 200903, end: 201403

REACTIONS (2)
  - Blood thyroid stimulating hormone abnormal [None]
  - Malaise [None]
